FAERS Safety Report 7238204-5 (Version None)
Quarter: 2011Q1

REPORT INFORMATION
  Report Type: 
  Country: None (occurrence: None)
  Receive Date: 20110121
  Receipt Date: 20110118
  Transmission Date: 20110831
  Serious: No
  Sender: FDA-Public Use
  Company Number: US-PFIZER INC-2011013992

PATIENT
  Age: 40 Year
  Sex: Female
  Weight: 52.154 kg

DRUGS (3)
  1. ADVIL LIQUI-GELS [Suspect]
     Indication: TOOTHACHE
     Dosage: 3 DF, UNK
     Dates: start: 20110117
  2. ADVIL LIQUI-GELS [Suspect]
     Indication: NASOPHARYNGITIS
     Dosage: UNK 1 CAPLET X1
     Route: 048
     Dates: start: 20101201
  3. AMOXICILLIN [Concomitant]

REACTIONS (1)
  - CHOKING SENSATION [None]
